FAERS Safety Report 24717538 (Version 2)
Quarter: 2025Q1

REPORT INFORMATION
  Report Type: Report from Study
  Country: US (occurrence: US)
  Receive Date: 20241210
  Receipt Date: 20250203
  Transmission Date: 20250408
  Serious: Yes (Hospitalization)
  Sender: CSL BEHRING
  Company Number: US-BEH-2024187135

PATIENT
  Sex: Female
  Weight: 45.5 kg

DRUGS (1)
  1. VELPHORO [Suspect]
     Active Substance: SUCROFERRIC OXYHYDROXIDE
     Dosage: 500 MG, TID, WITH MEALS
     Route: 048
     Dates: start: 20240216

REACTIONS (3)
  - Death [Fatal]
  - Hospitalisation [Unknown]
  - Product supply issue [Unknown]

NARRATIVE: CASE EVENT DATE: 20240901
